FAERS Safety Report 23897543 (Version 1)
Quarter: 2024Q2

REPORT INFORMATION
  Report Type: Spontaneous
  Country: US (occurrence: US)
  Receive Date: 20240524
  Receipt Date: 20240524
  Transmission Date: 20240715
  Serious: Yes (Hospitalization)
  Sender: FDA-Public Use
  Company Number: US-Vifor (International) Inc.-VIT-2024-04581

PATIENT
  Age: 64 Year
  Sex: Female

DRUGS (1)
  1. VELPHORO [Suspect]
     Active Substance: SUCROFERRIC OXYHYDROXIDE
     Indication: Hyperphosphataemia

REACTIONS (7)
  - Iron overload [Unknown]
  - Melaena [Unknown]
  - Diarrhoea [Unknown]
  - Hypotension [Unknown]
  - Serum ferritin increased [Recovering/Resolving]
  - Hepatic iron overload [Unknown]
  - Splenic iron overload [Unknown]
